FAERS Safety Report 10498817 (Version 2)
Quarter: 2014Q4

REPORT INFORMATION
  Report Type: Spontaneous
  Country: JP (occurrence: JP)
  Receive Date: 20141006
  Receipt Date: 20141017
  Transmission Date: 20150528
  Serious: Yes (Hospitalization)
  Sender: FDA-Public Use
  Company Number: PHHY2014JP126037

PATIENT
  Sex: Female

DRUGS (1)
  1. NEORAL [Suspect]
     Active Substance: CYCLOSPORINE
     Indication: NEPHROTIC SYNDROME
     Dosage: 125 MG, ONCE DAILY
     Route: 048

REACTIONS (6)
  - Pneumonia aspiration [Unknown]
  - Cystitis [Unknown]
  - Nausea [Unknown]
  - Dysphagia [Recovered/Resolved]
  - Pyrexia [Unknown]
  - Gastric cancer [Unknown]
